FAERS Safety Report 11765822 (Version 1)
Quarter: 2015Q4

REPORT INFORMATION
  Report Type: Spontaneous
  Country: BR (occurrence: BR)
  Receive Date: 20151121
  Receipt Date: 20151121
  Transmission Date: 20160304
  Serious: Yes (Other)
  Sender: FDA-Public Use
  Company Number: CHPA2015BR013592

PATIENT
  Sex: Female
  Weight: 90 kg

DRUGS (2)
  1. CYMBI [Concomitant]
     Indication: PRODUCT USED FOR UNKNOWN INDICATION
     Dosage: 2 DF, QD
     Route: 065
     Dates: start: 2014
  2. CATAFLAM PRO XT EMULGEL [Suspect]
     Active Substance: DICLOFENAC DIETHYLAMINE
     Indication: PAIN
     Dosage: UNK
     Route: 065

REACTIONS (5)
  - Pain [Unknown]
  - Fall [Unknown]
  - Nerve injury [Unknown]
  - Radius fracture [None]
  - Upper limb fracture [Unknown]

NARRATIVE: CASE EVENT DATE: 2015
